FAERS Safety Report 9034208 (Version 1)
Quarter: 2013Q1

REPORT INFORMATION
  Report Type: Spontaneous
  Country: US (occurrence: None)
  Receive Date: 20130114
  Receipt Date: 20130114
  Transmission Date: 20140127
  Serious: Yes (Other)
  Sender: FDA-Public Use
  Company Number: KAD201301-000028

PATIENT
  Age: 60 Year
  Sex: Male

DRUGS (3)
  1. RIBAVIRIN (RIBAVIRIN) [Suspect]
     Indication: CHRONIC HEPATITIS C
  2. PEGYLATED INTERFERON ALFA (PEGYLATED INTERFERON ALFA) [Suspect]
     Indication: CHRONIC HEPATITIS C
  3. BOCEPREVIR [Suspect]
     Indication: CHRONIC HEPATITIS C

REACTIONS (2)
  - Diffuse large B-cell lymphoma [None]
  - Oropharyngeal pain [None]
